FAERS Safety Report 5570299-7 (Version None)
Quarter: 2007Q4

REPORT INFORMATION
  Report Type: 
  Country: None (occurrence: None)
  Receive Date: 20071219
  Receipt Date: 20071219
  Transmission Date: 20080405
  Serious: Yes (Hospitalization)
  Sender: FDA-Public Use
  Company Number: None

PATIENT
  Sex: Female
  Weight: 63.6 kg

DRUGS (4)
  1. TEMOZOLOMIDE [Suspect]
     Dosage: 1750 MG
  2. DILANTIN [Concomitant]
  3. POTASSIUM CHLORIDE [Concomitant]
  4. ZOFRAN [Concomitant]

REACTIONS (3)
  - DIARRHOEA [None]
  - PNEUMONIA [None]
  - WHITE BLOOD CELL COUNT DECREASED [None]
